FAERS Safety Report 8555427-3 (Version None)
Quarter: 2012Q3

REPORT INFORMATION
  Report Type: 
  Country: None (occurrence: None)
  Receive Date: 20120731
  Receipt Date: 20110825
  Transmission Date: 20120928
  Serious: Yes (Other)
  Sender: FDA-Public Use
  Company Number: US-ASTRAZENECA-2011SE12707

PATIENT
  Sex: Male

DRUGS (4)
  1. LITHIUM CARBONATE [Concomitant]
     Dosage: 300, QHS
     Dates: start: 20070317
  2. SEROQUEL [Suspect]
     Dosage: 100. QHS
     Route: 048
     Dates: start: 20070317
  3. ZYPREXA [Concomitant]
     Dates: start: 20070317
  4. KLONOPIN [Concomitant]
     Dosage: 0.5, BID PRN
     Dates: start: 20070317

REACTIONS (3)
  - PANCREATITIS [None]
  - DIABETIC COMA [None]
  - TYPE 2 DIABETES MELLITUS [None]
